FAERS Safety Report 7942104-2 (Version None)
Quarter: 2011Q4

REPORT INFORMATION
  Report Type: 
  Country: None (occurrence: None)
  Receive Date: 20111122
  Receipt Date: 20111114
  Transmission Date: 20120403
  Serious: Yes (Other)
  Sender: FDA-Public Use
  Company Number: JP-ACCORD-008212

PATIENT
  Age: 42 Year
  Sex: Male

DRUGS (1)
  1. FINASTERIDE [Suspect]
     Indication: ANDROGENETIC ALOPECIA
     Dosage: 1.00-MG

REACTIONS (3)
  - AZOOSPERMIA [None]
  - OFF LABEL USE [None]
  - INFERTILITY MALE [None]
